FAERS Safety Report 5266149-9 (Version None)
Quarter: 2007Q1

REPORT INFORMATION
  Report Type: 
  Country: None (occurrence: None)
  Receive Date: 20070307
  Receipt Date: 20070223
  Transmission Date: 20070707
  Serious: Yes (Other)
  Sender: FDA-Public Use
  Company Number: B0460675A

PATIENT
  Age: 16 Year
  Sex: Female

DRUGS (4)
  1. ADVAIR INHALER (FLUTICASONE+SALMETEROL) [Suspect]
     Indication: BRONCHIECTASIS
     Dosage: INHALED
     Route: 055
  2. RITONAVIR (FORMULATION UNKNOWN) (RITONAVIR) [Suspect]
     Indication: HIV INFECTION
     Dates: start: 19981001
  3. STAVUDINE [Concomitant]
  4. LAMIVUDINE [Concomitant]

REACTIONS (6)
  - ACNE [None]
  - AMENORRHOEA [None]
  - CUSHING'S SYNDROME [None]
  - DRUG INTERACTION [None]
  - HYPERCHOLESTEROLAEMIA [None]
  - HYPERTRIGLYCERIDAEMIA [None]
